APPROVED DRUG PRODUCT: TRIAMTERENE AND HYDROCHLOROTHIAZIDE
Active Ingredient: HYDROCHLOROTHIAZIDE; TRIAMTERENE
Strength: 50MG;75MG
Dosage Form/Route: TABLET;ORAL
Application: A071251 | Product #001 | TE Code: AB
Applicant: APOTEX INC
Approved: Apr 17, 1988 | RLD: No | RS: No | Type: RX